FAERS Safety Report 6580091-2 (Version None)
Quarter: 2010Q1

REPORT INFORMATION
  Report Type: 
  Country: None (occurrence: None)
  Receive Date: 20100212
  Receipt Date: 20100205
  Transmission Date: 20100710
  Serious: Yes (Other)
  Sender: FDA-Public Use
  Company Number: US-MERCK-01071961

PATIENT
  Age: 31 Year
  Sex: Female

DRUGS (3)
  1. MAXALT-MLT [Suspect]
     Indication: HEADACHE
     Route: 065
  2. MAXALT-MLT [Suspect]
     Indication: MIGRAINE
     Route: 065
  3. DROPERIDOL [Concomitant]
     Route: 065

REACTIONS (5)
  - DYSTONIA [None]
  - LOSS OF CONSCIOUSNESS [None]
  - MOVEMENT DISORDER [None]
  - TACHYCARDIA [None]
  - TREMOR [None]
